FAERS Safety Report 18049671 (Version 1)
Quarter: 2020Q3

REPORT INFORMATION
  Report Type: Spontaneous
  Country: US (occurrence: US)
  Receive Date: 20200721
  Receipt Date: 20200721
  Transmission Date: 20201103
  Serious: Yes (Other)
  Sender: FDA-Public Use
  Company Number: None

PATIENT
  Age: 20 Year
  Sex: Male
  Weight: 100 kg

DRUGS (6)
  1. TOCILIZUMAB 400MG IV ONCE [Concomitant]
     Dates: start: 20200715, end: 20200715
  2. DEXAMETHASONE 6MG PO Q24H [Concomitant]
     Dates: start: 20200713, end: 20200721
  3. AZITHROMYCIN 500MG IV Q24H [Concomitant]
     Dates: start: 20200715, end: 20200715
  4. ENOXAPARIN 40MG SQ Q24H [Concomitant]
     Dates: start: 20200714, end: 20200721
  5. REMDESIVIR. [Suspect]
     Active Substance: REMDESIVIR
     Indication: COVID-19
     Route: 041
     Dates: start: 20200715, end: 20200718
  6. CEFTRIAXONE 2G IV Q24H [Concomitant]
     Dates: start: 20200714, end: 20200716

REACTIONS (1)
  - Alanine aminotransferase increased [None]

NARRATIVE: CASE EVENT DATE: 20200718
